FAERS Safety Report 6062675-3 (Version None)
Quarter: 2009Q1

REPORT INFORMATION
  Report Type: 
  Country: None (occurrence: None)
  Receive Date: 20090203
  Receipt Date: 20090123
  Transmission Date: 20090719
  Serious: Yes (Hospitalization)
  Sender: FDA-Public Use
  Company Number: US-KINGPHARMUSA00001-K200900072

PATIENT
  Sex: Female

DRUGS (13)
  1. CORGARD [Suspect]
     Dosage: 80 MG, UNK
     Route: 048
     Dates: end: 20080821
  2. CORDARONE [Suspect]
     Dosage: 200 MG, 1/5 WEEK
     Route: 048
     Dates: end: 20080822
  3. LASIX [Suspect]
     Dosage: 60 MG, QD
     Route: 048
  4. LASIX [Suspect]
     Dosage: 40 MG, QD
  5. LOGIMAX [Suspect]
     Dosage: ^52.5^ MG, UNK
     Route: 048
     Dates: end: 20080826
  6. NITROGLYCERIN [Concomitant]
  7. KARDEGIC                           /00002703/ [Concomitant]
  8. UMULINE ZINC COMPOSE               /00030503/ [Concomitant]
  9. METFORMINE HCL [Concomitant]
  10. NOVONORM [Concomitant]
  11. FUROSEMIDE [Concomitant]
  12. DIFFU K [Concomitant]
  13. TAHOR [Concomitant]

REACTIONS (5)
  - BRADYCARDIA [None]
  - BUNDLE BRANCH BLOCK [None]
  - HYPOTENSION [None]
  - MALAISE [None]
  - RENAL FAILURE ACUTE [None]
